FAERS Safety Report 9301589 (Version 1)
Quarter: 2013Q2

REPORT INFORMATION
  Report Type: Spontaneous
  Country: US (occurrence: None)
  Receive Date: 20130520
  Receipt Date: 20130520
  Transmission Date: 20140414
  Serious: No
  Sender: FDA-Public Use
  Company Number: None

PATIENT
  Age: 54 Year
  Sex: Female
  Weight: 60.33 kg

DRUGS (1)
  1. LEVOTHYROXINE [Suspect]
     Indication: HYPOTHYROIDISM
     Dosage: 1 DAILY
     Route: 048
     Dates: start: 20121004

REACTIONS (3)
  - Blood thyroid stimulating hormone increased [None]
  - Product quality issue [None]
  - No therapeutic response [None]
